FAERS Safety Report 7522899-2 (Version None)
Quarter: 2011Q2

REPORT INFORMATION
  Report Type: 
  Country: None (occurrence: None)
  Receive Date: 20110603
  Receipt Date: 20110530
  Transmission Date: 20111010
  Serious: Yes (Death, Hospitalization)
  Sender: FDA-Public Use
  Company Number: PHHO2011JP06160

PATIENT
  Sex: Male
  Weight: 72 kg

DRUGS (13)
  1. ENALAPRIL MALEATE [Suspect]
     Indication: CARDIAC FAILURE
     Dosage: CODE NOT BROKEN
     Route: 048
     Dates: start: 20100712, end: 20110405
  2. LIPITOR [Concomitant]
     Indication: HYPERCHOLESTEROLAEMIA
     Dosage: UNK
  3. ALDACTONE [Concomitant]
     Indication: CARDIAC FAILURE CHRONIC
  4. ACARDI [Concomitant]
     Indication: CARDIAC FAILURE
  5. ASPIRIN [Concomitant]
     Indication: CARDIAC FAILURE CHRONIC
     Dosage: UNK
  6. LASIX [Concomitant]
     Indication: CARDIAC FAILURE CHRONIC
  7. CARVEDILOL [Concomitant]
     Indication: CARDIAC FAILURE CHRONIC
  8. BLINDED ALISKIREN [Suspect]
     Indication: CARDIAC FAILURE
     Dosage: CODE NOT BROKEN
     Route: 048
     Dates: start: 20100712, end: 20110405
  9. ALISKIREN [Suspect]
     Indication: CARDIAC FAILURE
     Dosage: 150 MG, UNK
     Route: 048
     Dates: start: 20100621
  10. ENALAPRIL MALEATE [Suspect]
     Indication: CARDIAC FAILURE
     Dosage: UNK
     Dates: start: 20100607, end: 20110404
  11. ALLOPURINOL [Concomitant]
     Indication: HYPERURICAEMIA
  12. BLINDED NO TREATMENT RECEIVED [Suspect]
     Indication: CARDIAC FAILURE
     Dosage: CODE NOT BROKEN
     Route: 048
     Dates: start: 20100712, end: 20110405
  13. WARFARIN SODIUM [Concomitant]
     Indication: CARDIAC FAILURE CHRONIC

REACTIONS (2)
  - VENTRICULAR TACHYCARDIA [None]
  - CARDIAC FAILURE [None]
